FAERS Safety Report 6091675-2 (Version None)
Quarter: 2009Q1

REPORT INFORMATION
  Report Type: 
  Country: None (occurrence: None)
  Receive Date: 20090225
  Receipt Date: 20080402
  Transmission Date: 20090719
  Serious: No
  Sender: FDA-Public Use
  Company Number: A0718963A

PATIENT
  Age: 57 Year
  Sex: Female

DRUGS (3)
  1. VALTREX [Suspect]
     Indication: GENITAL HERPES
     Dosage: 500MG PER DAY
     Route: 048
     Dates: start: 20050101
  2. PROZAC [Concomitant]
  3. LORAZEPAM [Concomitant]

REACTIONS (1)
  - DRUG INEFFECTIVE [None]
